FAERS Safety Report 7415576-X (Version None)
Quarter: 2011Q2

REPORT INFORMATION
  Report Type: 
  Country: None (occurrence: None)
  Receive Date: 20110414
  Receipt Date: 20110406
  Transmission Date: 20111010
  Serious: No
  Sender: FDA-Public Use
  Company Number: US-JNJFOC-20110403747

PATIENT
  Sex: Male
  Weight: 95.26 kg

DRUGS (3)
  1. FENTANYL-100 [Suspect]
     Indication: NEURALGIA
     Dosage: EVERY ONE TO TWO DAYS AS NEEDED
     Route: 062
  2. FENTANYL-100 [Suspect]
     Route: 062
  3. FENTANYL-100 [Suspect]
     Dosage: EVERY ONE TO TWO DAYS AS NEEDED
     Route: 062

REACTIONS (2)
  - DRUG INEFFECTIVE [None]
  - INAPPROPRIATE SCHEDULE OF DRUG ADMINISTRATION [None]
